FAERS Safety Report 10034652 (Version 1)
Quarter: 2014Q1

REPORT INFORMATION
  Report Type: Spontaneous
  Country: US (occurrence: US)
  Receive Date: 20140325
  Receipt Date: 20140325
  Transmission Date: 20141002
  Serious: Yes (Hospitalization)
  Sender: FDA-Public Use
  Company Number: US-OTSUKA-US-2014-10519

PATIENT
  Sex: Female

DRUGS (1)
  1. ABILIFY MAINTENA [Suspect]
     Indication: SCHIZOPHRENIA
     Dosage: 400 MG MILLIGRAM(S), QM
     Route: 030
     Dates: start: 201306

REACTIONS (4)
  - Syncope [Unknown]
  - Vertigo [Unknown]
  - Dizziness [Unknown]
  - Vomiting [Unknown]
